FAERS Safety Report 4682306-4 (Version None)
Quarter: 2005Q2

REPORT INFORMATION
  Report Type: 
  Country: None (occurrence: None)
  Receive Date: 20050606
  Receipt Date: 20050527
  Transmission Date: 20051028
  Serious: Yes (Other)
  Sender: FDA-Public Use
  Company Number: US-JNJFOC-20050507365

PATIENT
  Age: 51 Year
  Sex: Male
  Weight: 62.6 kg

DRUGS (8)
  1. DURAGESIC-100 [Suspect]
     Route: 062
  2. PERCOCET [Concomitant]
  3. PERCOCET [Concomitant]
  4. CLONIPINE [Concomitant]
  5. ASPIRIN [Concomitant]
  6. STOOL SOFTENERS [Concomitant]
  7. DILANTIN KAPSEAL [Concomitant]
  8. GABAPENTIN [Concomitant]

REACTIONS (4)
  - BODY HEIGHT DECREASED [None]
  - SUICIDAL IDEATION [None]
  - THERAPEUTIC RESPONSE DECREASED [None]
  - WEIGHT DECREASED [None]
